FAERS Safety Report 8043490-8 (Version None)
Quarter: 2012Q1

REPORT INFORMATION
  Report Type: 
  Country: None (occurrence: None)
  Receive Date: 20120112
  Receipt Date: 20120110
  Transmission Date: 20120608
  Serious: Yes (Life-Threatening, Hospitalization)
  Sender: FDA-Public Use
  Company Number: US-PFIZER INC-2011US-42919

PATIENT
  Sex: Male

DRUGS (8)
  1. BLINDED THERAPY [Suspect]
     Indication: TYPE 2 DIABETES MELLITUS
     Dosage: 40 IU, UNK
     Route: 065
     Dates: start: 20110202
  2. METOPROLOL [Suspect]
     Dosage: UNK
     Route: 065
  3. VERAPAMIL HCL [Suspect]
     Dosage: UNK
  4. DIOVAN [Suspect]
     Route: 065
  5. LASIX [Suspect]
     Dosage: UNK
     Route: 065
  6. EZETIMIBE [Concomitant]
     Dosage: UNK
     Route: 065
  7. LANTUS [Suspect]
     Indication: DIABETES MELLITUS
     Dosage: 40 IU, UNK
     Route: 065
  8. ACETYLSALICYLIC ACID [Concomitant]
     Route: 065

REACTIONS (1)
  - RENAL FAILURE ACUTE [None]
